FAERS Safety Report 17453810 (Version 2)
Quarter: 2020Q1

REPORT INFORMATION
  Report Type: Report from Study
  Country: US (occurrence: US)
  Receive Date: 20200224
  Receipt Date: 20200226
  Transmission Date: 20200409
  Serious: Yes (Other)
  Sender: FDA-Public Use
  Company Number: US-BAUSCH-BL-2020-005303

PATIENT
  Sex: Female

DRUGS (1)
  1. XIFAXAN [Suspect]
     Active Substance: RIFAXIMIN
     Indication: PRODUCT USED FOR UNKNOWN INDICATION
     Dosage: END DATE: APPROXIMATELY 4-5 MONTHS AGO SOMETIME IN 2019
     Route: 048
     Dates: end: 2019

REACTIONS (4)
  - Insurance issue [Unknown]
  - Lung neoplasm malignant [Unknown]
  - Memory impairment [Not Recovered/Not Resolved]
  - Therapy cessation [Unknown]

NARRATIVE: CASE EVENT DATE: 2019
